FAERS Safety Report 6983767-8 (Version None)
Quarter: 2010Q3

REPORT INFORMATION
  Report Type: 
  Country: None (occurrence: None)
  Receive Date: 20100914
  Receipt Date: 20090220
  Transmission Date: 20110219
  Serious: No
  Sender: FDA-Public Use
  Company Number: US-WYE-H07695509

PATIENT
  Sex: Female

DRUGS (1)
  1. ADVIL LIQUI-GELS [Suspect]
     Dosage: UNKNOWN
     Route: 048

REACTIONS (3)
  - ABDOMINAL DISCOMFORT [None]
  - FEELING JITTERY [None]
  - PRODUCT QUALITY ISSUE [None]
